FAERS Safety Report 17756049 (Version 1)
Quarter: 2020Q2

REPORT INFORMATION
  Report Type: Spontaneous
  Country: GB (occurrence: GB)
  Receive Date: 20200507
  Receipt Date: 20200507
  Transmission Date: 20200714
  Serious: Yes (Hospitalization)
  Sender: FDA-Public Use
  Company Number: GB-PFIZER INC-2020180519

PATIENT
  Age: 78 Year
  Sex: Female
  Weight: 53 kg

DRUGS (1)
  1. CRIZOTINIB [Suspect]
     Active Substance: CRIZOTINIB
     Indication: NON-SMALL CELL LUNG CANCER
     Dosage: 500 MG, 1X/DAY
     Route: 048
     Dates: start: 20200219, end: 20200226

REACTIONS (5)
  - Cough [Unknown]
  - Oesophagitis [Recovering/Resolving]
  - Dysphagia [Unknown]
  - Acute interstitial pneumonitis [Recovering/Resolving]
  - Dysphonia [Unknown]
